FAERS Safety Report 14995216 (Version 1)
Quarter: 2018Q2

REPORT INFORMATION
  Report Type: Spontaneous
  Country: BE (occurrence: BE)
  Receive Date: 20180611
  Receipt Date: 20180611
  Transmission Date: 20180711
  Serious: Yes (Other)
  Sender: FDA-Public Use
  Company Number: BE-PFIZER INC-2018234933

PATIENT
  Age: 55 Year
  Sex: Male

DRUGS (2)
  1. CYTARABINE. [Suspect]
     Active Substance: CYTARABINE
     Indication: MYELODYSPLASTIC SYNDROME
     Dosage: UNK
  2. IDARUBICIN HCL [Suspect]
     Active Substance: IDARUBICIN HYDROCHLORIDE
     Indication: MYELODYSPLASTIC SYNDROME
     Dosage: UNK

REACTIONS (9)
  - Bacteraemia [Unknown]
  - Pyrexia [Recovered/Resolved]
  - Neutropenia [Unknown]
  - Pancytopenia [Unknown]
  - Nausea [Unknown]
  - Mucosal inflammation [Unknown]
  - Gingival bleeding [Unknown]
  - Febrile neutropenia [Unknown]
  - Stomatitis [Recovered/Resolved]
